FAERS Safety Report 18173880 (Version 1)
Quarter: 2020Q3

REPORT INFORMATION
  Report Type: Report from Study
  Country: CA (occurrence: CA)
  Receive Date: 20200819
  Receipt Date: 20200819
  Transmission Date: 20201103
  Serious: Yes (Hospitalization, Other)
  Sender: FDA-Public Use
  Company Number: CA-HLS-202001015

PATIENT
  Sex: Male

DRUGS (19)
  1. DIVALPROEX [Concomitant]
     Active Substance: DIVALPROEX SODIUM
     Dosage: AT BEDTIME
     Route: 065
  2. VITAMIN D [Concomitant]
     Active Substance: VITAMIN D NOS
     Route: 065
  3. SITAGLIPTIN [Concomitant]
     Active Substance: SITAGLIPTIN
     Route: 065
  4. PSYLLIUM [Concomitant]
     Active Substance: PLANTAGO SEED
     Route: 065
  5. FLUANXOL [Concomitant]
     Active Substance: FLUPENTIXOL
     Route: 030
  6. MODECATE [Concomitant]
     Active Substance: FLUPHENAZINE DECANOATE
     Dosage: 100 MG/ML: 25 MG Q 4 WEEKS
     Route: 030
  7. CALCIUM [Concomitant]
     Active Substance: CALCIUM
     Route: 065
  8. ROSUVASTATIN. [Concomitant]
     Active Substance: ROSUVASTATIN
     Route: 065
  9. DAPAGLIFLOZIN. [Concomitant]
     Active Substance: DAPAGLIFLOZIN
     Route: 065
  10. FLUPHENAZINE??DECAONATE [Concomitant]
     Dosage: 100??MG??PER??ML,??25??MG,??Q??4??WEEKS
     Route: 030
  11. CLOZARIL [Suspect]
     Active Substance: CLOZAPINE
     Dosage: 75 MG IN THE MORNING AND 100 MG AT NIGHT
     Route: 048
     Dates: start: 20021024
  12. SERTRALINE [Concomitant]
     Active Substance: SERTRALINE HYDROCHLORIDE
     Dosage: 50 MG TO 100 MG AT BEDTIME
     Route: 065
  13. ATROPINE. [Concomitant]
     Active Substance: ATROPINE
     Dosage: ??1?3??DROPS??PRN
     Route: 065
  14. CLOZARIL [Suspect]
     Active Substance: CLOZAPINE
     Dosage: CLOZAPINE 500 MG WAS DECREASED TO 350 MG
     Route: 048
     Dates: start: 200212
  15. PROPRANOLOL [Concomitant]
     Active Substance: PROPRANOLOL HYDROCHLORIDE
     Route: 065
  16. METFORMIN [Concomitant]
     Active Substance: METFORMIN HYDROCHLORIDE
     Route: 065
  17. PROCYCLIDINE [Concomitant]
     Active Substance: PROCYCLIDINE
     Route: 065
  18. GLYBURIDE. [Concomitant]
     Active Substance: GLYBURIDE
     Route: 065
  19. COGENTIN [Concomitant]
     Active Substance: BENZTROPINE MESYLATE
     Route: 065

REACTIONS (8)
  - Platelet count decreased [Unknown]
  - Mania [Unknown]
  - Inappropriate antidiuretic hormone secretion [Unknown]
  - Seizure [Unknown]
  - Disturbance in attention [Unknown]
  - Athetosis [Unknown]
  - Constipation [Unknown]
  - Lymphocyte count decreased [Unknown]

NARRATIVE: CASE EVENT DATE: 2018
